FAERS Safety Report 7797440-X (Version None)
Quarter: 2011Q4

REPORT INFORMATION
  Report Type: 
  Country: None (occurrence: None)
  Receive Date: 20111005
  Receipt Date: 20110921
  Transmission Date: 20120403
  Serious: Yes (Hospitalization, Other)
  Sender: FDA-Public Use
  Company Number: CA-ROCHE-750925

PATIENT
  Sex: Female
  Weight: 61.744 kg

DRUGS (5)
  1. AVASTIN [Suspect]
     Indication: COLORECTAL CANCER
     Route: 042
     Dates: start: 20100819, end: 20110823
  2. AVASTIN [Suspect]
     Route: 042
  3. CARBOPLATIN [Concomitant]
  4. MORPHINE SULPHATE SR [Concomitant]
  5. LORAZEPAM [Concomitant]

REACTIONS (4)
  - NASAL DISCOMFORT [None]
  - ASCITES [None]
  - DISEASE PROGRESSION [None]
  - EPISTAXIS [None]
